FAERS Safety Report 19450743 (Version 1)
Quarter: 2021Q2

REPORT INFORMATION
  Report Type: Report from Study
  Country: US (occurrence: US)
  Receive Date: 20210622
  Receipt Date: 20210622
  Transmission Date: 20210717
  Serious: Yes (Hospitalization)
  Sender: FDA-Public Use
  Company Number: US-EXELIXIS-CABO-21041596

PATIENT
  Sex: Female

DRUGS (1)
  1. CABOMETYX [Suspect]
     Active Substance: CABOZANTINIB S-MALATE
     Indication: RENAL CANCER
     Dosage: UNK, QD
     Route: 048
     Dates: start: 202104, end: 202105

REACTIONS (4)
  - Hepatic failure [Unknown]
  - Malignant neoplasm progression [Unknown]
  - Renal failure [Unknown]
  - Bladder disorder [Unknown]
